FAERS Safety Report 21381205 (Version 1)
Quarter: 2022Q3

REPORT INFORMATION
  Report Type: Spontaneous
  Country: GR (occurrence: GR)
  Receive Date: 20220927
  Receipt Date: 20220927
  Transmission Date: 20221027
  Serious: Yes (Other)
  Sender: FDA-Public Use
  Company Number: None

PATIENT
  Age: 35 Year
  Sex: Female
  Weight: 54 kg

DRUGS (1)
  1. DROSPIRENONE [Suspect]
     Active Substance: DROSPIRENONE
     Indication: Contraception
     Dosage: 1 DF, QD
     Route: 048
     Dates: start: 20210705, end: 20210809

REACTIONS (1)
  - Insulin resistance [Recovered/Resolved]

NARRATIVE: CASE EVENT DATE: 20210712
